FAERS Safety Report 8097358-1 (Version None)
Quarter: 2012Q1

REPORT INFORMATION
  Report Type: 
  Country: None (occurrence: None)
  Receive Date: 20120128
  Receipt Date: 20110718
  Transmission Date: 20120608
  Serious: No
  Sender: FDA-Public Use
  Company Number: US-ABBOTT-11P-163-0839638-00

PATIENT
  Sex: Female
  Weight: 59.02 kg

DRUGS (4)
  1. HUMIRA [Suspect]
     Indication: COLITIS
     Dates: start: 20110501, end: 20110701
  2. SYNTHROID [Concomitant]
     Indication: HYPOTHYROIDISM
  3. HUMIRA [Suspect]
     Indication: COLITIS
     Dates: start: 20110701
  4. UNKNOWN VITAMIN [Concomitant]
     Indication: VITAMIN SUPPLEMENTATION

REACTIONS (8)
  - FATIGUE [None]
  - INSOMNIA [None]
  - CRYING [None]
  - PRURITUS [None]
  - WEIGHT LOSS POOR [None]
  - ERYTHEMA [None]
  - DEPRESSION [None]
  - PRURITUS GENERALISED [None]
